FAERS Safety Report 22653197 (Version 3)
Quarter: 2023Q4

REPORT INFORMATION
  Report Type: Report from Study
  Country: BR (occurrence: BR)
  Receive Date: 20230629
  Receipt Date: 20231227
  Transmission Date: 20240110
  Serious: Yes (Hospitalization, Other)
  Sender: FDA-Public Use
  Company Number: BR-JNJFOC-20230653427

PATIENT
  Age: 54 Year
  Sex: Male

DRUGS (3)
  1. SIMPONI [Suspect]
     Active Substance: GOLIMUMAB
     Indication: Rheumatoid arthritis
     Route: 058
     Dates: start: 20190524
  2. SIMPONI [Suspect]
     Active Substance: GOLIMUMAB
  3. BACTRIM [Concomitant]
     Active Substance: SULFAMETHOXAZOLE\TRIMETHOPRIM
     Indication: Product used for unknown indication
     Dosage: 120CP OF BACTRIM
     Route: 048

REACTIONS (2)
  - Intervertebral discitis [Unknown]
  - Rheumatoid arthritis [Not Recovered/Not Resolved]
